FAERS Safety Report 16118465 (Version 1)
Quarter: 2019Q1

REPORT INFORMATION
  Report Type: Spontaneous
  Country: NO (occurrence: NO)
  Receive Date: 20190326
  Receipt Date: 20190326
  Transmission Date: 20190418
  Serious: Yes (Hospitalization)
  Sender: FDA-Public Use
  Company Number: NO-BAUSCH-BL-2019-008615

PATIENT
  Age: 49 Year
  Sex: Female

DRUGS (2)
  1. PREDNISOLON [Suspect]
     Active Substance: PREDNISOLONE
     Indication: NEPHROTIC SYNDROME
     Dosage: DOSING FREQUENCY NOT SPECIIFED
     Route: 048
     Dates: start: 20190128
  2. PREDNISOLON [Suspect]
     Active Substance: PREDNISOLONE
     Dosage: DOSE REDUCED
     Route: 048
     Dates: start: 2019

REACTIONS (4)
  - Anxiety [Recovering/Resolving]
  - Insomnia [Recovering/Resolving]
  - Feeling jittery [Recovering/Resolving]
  - Paranoia [Recovering/Resolving]

NARRATIVE: CASE EVENT DATE: 20190207
